FAERS Safety Report 6986048-1 (Version None)
Quarter: 2010Q3

REPORT INFORMATION
  Report Type: 
  Country: None (occurrence: None)
  Receive Date: 20100915
  Receipt Date: 20100913
  Transmission Date: 20110219
  Serious: Yes (Hospitalization)
  Sender: FDA-Public Use
  Company Number: ES-MERCK-1009ESP00012

PATIENT
  Age: 72 Year
  Sex: Female

DRUGS (4)
  1. JANUMET [Suspect]
     Indication: TYPE 2 DIABETES MELLITUS
     Route: 048
     Dates: start: 20100101
  2. TORSEMIDE SODIUM [Concomitant]
     Route: 048
  3. BARNIDIPINE HYDROCHLORIDE [Concomitant]
     Route: 048
  4. HYDROCHLOROTHIAZIDE AND OLMESARTAN MEDOXOMIL [Concomitant]
     Route: 048

REACTIONS (4)
  - ERYTHEMA [None]
  - OEDEMA PERIPHERAL [None]
  - SKIN EXFOLIATION [None]
  - SKIN WARM [None]
